FAERS Safety Report 9205339 (Version 2)
Quarter: 2013Q2

REPORT INFORMATION
  Report Type: Spontaneous
  Country: RU (occurrence: RU)
  Receive Date: 20130402
  Receipt Date: 20130430
  Transmission Date: 20140414
  Serious: Yes (Death)
  Sender: FDA-Public Use
  Company Number: RU-PFIZER INC-2013100262

PATIENT
  Age: 30 Year
  Sex: Female

DRUGS (1)
  1. PREPIDIL [Suspect]
     Indication: CERVIX DISORDER
     Dosage: 0.5 MG, SINGLE
     Route: 019
     Dates: start: 20110614

REACTIONS (1)
  - Uterine haemorrhage [Fatal]
